FAERS Safety Report 4350191-6 (Version None)
Quarter: 2004Q2

REPORT INFORMATION
  Report Type: 
  Country: None (occurrence: None)
  Receive Date: 20040426
  Receipt Date: 20040409
  Transmission Date: 20050107
  Serious: Yes (Hospitalization)
  Sender: FDA-Public Use
  Company Number: MAG-2002-0000047

PATIENT
  Age: 76 Year
  Sex: Female

DRUGS (5)
  1. POVIDONE IODINE [Suspect]
     Indication: CATARACT OPERATION
     Dosage: OPHTHALMIC
     Route: 047
     Dates: start: 20020527, end: 20020527
  2. XYLOCAINE [Suspect]
     Route: 047
     Dates: start: 20020527, end: 20020527
  3. DUOVISC [Suspect]
     Route: 047
     Dates: start: 20020527, end: 20020527
  4. BSS (CALCIUM CHLORIDE DIHYDRATE [Suspect]
     Route: 047
     Dates: start: 20020527, end: 20020527
  5. STER-DEX (DEXAMETHASONE, OXYTETRACYCLINE) [Suspect]
     Route: 047
     Dates: start: 20020527, end: 20020527

REACTIONS (5)
  - ENDOPHTHALMITIS [None]
  - ENTEROCOCCAL INFECTION [None]
  - NOSOCOMIAL INFECTION [None]
  - POSTOPERATIVE INFECTION [None]
  - UVEITIS [None]
